FAERS Safety Report 15878678 (Version 1)
Quarter: 2019Q1

REPORT INFORMATION
  Report Type: Spontaneous
  Country: US (occurrence: US)
  Receive Date: 20190128
  Receipt Date: 20190128
  Transmission Date: 20190417
  Serious: No
  Sender: FDA-Public Use
  Company Number: US-PFIZER INC-2019038125

PATIENT
  Age: 56 Year
  Sex: Female

DRUGS (1)
  1. IBRANCE [Suspect]
     Active Substance: PALBOCICLIB
     Dosage: 100 MG, UNK

REACTIONS (8)
  - Feeling abnormal [Unknown]
  - Decreased appetite [Unknown]
  - Nausea [Unknown]
  - Dyspepsia [Unknown]
  - Fatigue [Unknown]
  - Epistaxis [Unknown]
  - Vomiting [Unknown]
  - Alopecia [Unknown]
